FAERS Safety Report 5282605-1 (Version None)
Quarter: 2007Q1

REPORT INFORMATION
  Report Type: 
  Country: None (occurrence: None)
  Receive Date: 20070326
  Receipt Date: 20070312
  Transmission Date: 20070707
  Serious: Yes (Disabling)
  Sender: FDA-Public Use
  Company Number: ABARR-06-0319

PATIENT
  Age: 43 Year
  Sex: Female
  Weight: 64.8644 kg

DRUGS (5)
  1. ABRAXANE [Suspect]
     Indication: CHEMOTHERAPY
     Dosage: 470 MG EVERY 3 WKS (260 MG/M2), INTRAVENOUS DRIP
     Route: 041
     Dates: start: 20050726, end: 20060515
  2. FLUOROURACIL [Concomitant]
  3. LEUCOVORIN CALCIUM [Concomitant]
  4. DEXAMETHASONE TAB [Concomitant]
  5. KYTRIL [Concomitant]

REACTIONS (3)
  - ACTIVITIES OF DAILY LIVING IMPAIRED [None]
  - FACIAL PALSY [None]
  - NEUROPATHY PERIPHERAL [None]
